FAERS Safety Report 11048684 (Version 1)
Quarter: 2015Q2

REPORT INFORMATION
  Report Type: Spontaneous
  Country: CN (occurrence: CN)
  Receive Date: 20150420
  Receipt Date: 20150420
  Transmission Date: 20150821
  Serious: Yes (Hospitalization)
  Sender: FDA-Public Use
  Company Number: CN-JNJFOC-20150404780

PATIENT
  Age: 66 Year
  Sex: Female
  Weight: 55 kg

DRUGS (4)
  1. AESCUVEN FORTE [Suspect]
     Active Substance: HERBALS
     Indication: ARTHRALGIA
     Route: 048
     Dates: start: 20140428, end: 20140430
  2. TYLENOL [Suspect]
     Active Substance: ACETAMINOPHEN
     Indication: PYREXIA
     Route: 048
     Dates: start: 20140501, end: 20140501
  3. VOLTAREN [Suspect]
     Active Substance: DICLOFENAC SODIUM
     Indication: ARTHRALGIA
     Route: 048
     Dates: start: 20140428, end: 20140430
  4. MYONAL [Suspect]
     Active Substance: EPERISONE HYDROCHLORIDE
     Indication: ARTHRALGIA
     Route: 048
     Dates: start: 20140428, end: 20140430

REACTIONS (6)
  - Rash papular [None]
  - Rash papular [Recovering/Resolving]
  - Rash [Recovering/Resolving]
  - Pyrexia [Unknown]
  - Pruritus [None]
  - Secretion discharge [None]

NARRATIVE: CASE EVENT DATE: 20140501
